FAERS Safety Report 26083311 (Version 1)
Quarter: 2025Q4

REPORT INFORMATION
  Report Type: Spontaneous
  Country: US (occurrence: None)
  Receive Date: 20251124
  Receipt Date: 20251124
  Transmission Date: 20260118
  Serious: Yes (Hospitalization)
  Sender: FDA-CTU
  Company Number: None

PATIENT
  Sex: Female

DRUGS (11)
  1. LENALIDOMIDE [Suspect]
     Active Substance: LENALIDOMIDE
     Indication: Plasma cell myeloma in remission
     Dosage: FREQUENCY : DAILY;?
     Route: 048
     Dates: start: 20250227
  2. ABILIFY TAB 10MG [Concomitant]
  3. BISACODYL TAB 5MG EC [Concomitant]
  4. BUSPIRONE [Concomitant]
     Active Substance: BUSPIRONE HYDROCHLORIDE
  5. CREON CAP 36000UNT [Concomitant]
  6. LEVOTHYROXIN TAB 100MCG [Concomitant]
  7. LOSARTAN POT TAB 50MG [Concomitant]
  8. ONDANSETRON [Concomitant]
     Active Substance: ONDANSETRON
  9. PLAVIX [Concomitant]
     Active Substance: CLOPIDOGREL BISULFATE
  10. POT CHLORIDE TAB 20MEQ ER [Concomitant]
  11. PROPRANOLOL TAB 10MG [Concomitant]

REACTIONS (1)
  - Locomotive syndrome [None]
